FAERS Safety Report 4836305-X (Version None)
Quarter: 2005Q4

REPORT INFORMATION
  Report Type: 
  Country: None (occurrence: None)
  Receive Date: 20051121
  Receipt Date: 20051121
  Transmission Date: 20060501
  Serious: Yes (Death, Hospitalization)
  Sender: FDA-Public Use
  Company Number: None

PATIENT
  Sex: Female
  Weight: 98.8 kg

DRUGS (7)
  1. IRINOTECAN 125MG/M2   PFIZER [Suspect]
     Indication: GLIOBLASTOMA MULTIFORME
     Dosage: 280MG  IV  (DAY 1, 8, 22 AND 29)
     Route: 042
     Dates: start: 20051027, end: 20051103
  2. BEVACIZUMAB   15MG/KG   GENETECH [Suspect]
     Indication: GLIOBLASTOMA MULTIFORME
     Dosage: 1480MG IV (DAY 1 AND 22)
     Route: 042
     Dates: start: 20051027
  3. DECADRON [Concomitant]
  4. PRILOSEC [Concomitant]
  5. KEPPRA [Concomitant]
  6. MULTI-VITAMIN [Concomitant]
  7. LAMICTAL [Concomitant]

REACTIONS (3)
  - ANAPLASTIC ASTROCYTOMA [None]
  - MALIGNANT NEOPLASM PROGRESSION [None]
  - NEUROLOGICAL SYMPTOM [None]
